FAERS Safety Report 5102751-2 (Version None)
Quarter: 2006Q3

REPORT INFORMATION
  Report Type: 
  Country: None (occurrence: None)
  Receive Date: 20060907
  Receipt Date: 20060825
  Transmission Date: 20061208
  Serious: Yes (Life-Threatening, Other)
  Sender: FDA-Public Use
  Company Number: 2006059235

PATIENT
  Age: 58 Year
  Sex: Male
  Weight: 84 kg

DRUGS (10)
  1. DOXORUBICIN HCL [Suspect]
     Indication: METASTASES TO LIVER
  2. SU-011,248 (SUNITINIB MALATE) [Suspect]
     Indication: GASTROINTESTINAL STROMAL TUMOUR
     Dosage: 50 MG (50 MG,ONCE DAILY - INTERVAL: 28 D ON/14 D OFF),ORAL
     Route: 048
     Dates: start: 20060308
  3. LIPIODOL (IODIZED OIL) [Suspect]
     Indication: METASTASES TO LIVER
  4. METOCLOPRAMIDE [Concomitant]
  5. PANTOZOL (PANTOPRAZOLE SODIUM) [Concomitant]
  6. NORVASC [Concomitant]
  7. COSOPT [Concomitant]
  8. FOSINORM (FOSINOPRIL SODIUM) [Concomitant]
  9. LACTULOSE [Concomitant]
  10. BENALAPRIL (ENALAPRIL) [Concomitant]

REACTIONS (8)
  - ALANINE AMINOTRANSFERASE INCREASED [None]
  - ASPARTATE AMINOTRANSFERASE INCREASED [None]
  - HEART RATE DECREASED [None]
  - HYPERTENSION [None]
  - HYPOTENSION [None]
  - PROCEDURAL COMPLICATION [None]
  - SYNCOPE [None]
  - TRANSAMINASES INCREASED [None]
